FAERS Safety Report 24849844 (Version 1)
Quarter: 2025Q1

REPORT INFORMATION
  Report Type: Spontaneous
  Country: US (occurrence: None)
  Receive Date: 20250115
  Receipt Date: 20250115
  Transmission Date: 20250409
  Serious: Yes (Disabling)
  Sender: FDA-CTU
  Company Number: None

PATIENT
  Age: 65 Year
  Sex: Female
  Weight: 76.95 kg

DRUGS (9)
  1. OZEMPIC [Suspect]
     Active Substance: SEMAGLUTIDE
     Indication: Weight decreased
     Dosage: 1 INJECTION  1 INJ PER QEEK SUBCUTANEOUS?
     Route: 058
  2. OZEMPIC [Suspect]
     Active Substance: SEMAGLUTIDE
     Indication: Cardiac failure
  3. OZEMPIC [Suspect]
     Active Substance: SEMAGLUTIDE
     Indication: Arthritis
  4. LOSARTAN [Concomitant]
     Active Substance: LOSARTAN
  5. METOPROLOL [Concomitant]
     Active Substance: METOPROLOL
  6. VITAMINS [Concomitant]
     Active Substance: VITAMINS
  7. VITAMIN B COMPLEX [Concomitant]
     Active Substance: CYANOCOBALAMIN\DEXPANTHENOL\NIACINAMIDE\PYRIDOXINE HYDROCHLORIDE\RIBOFLAVIN 5^-PHOSPHATE SODIUM\THIA
  8. VITAMIN D [Concomitant]
     Active Substance: VITAMIN D NOS
  9. ASPIRIN [Concomitant]
     Active Substance: ASPIRIN

REACTIONS (5)
  - Arthralgia [None]
  - Sacral pain [None]
  - Arthralgia [None]
  - Insomnia [None]
  - Poor quality sleep [None]

NARRATIVE: CASE EVENT DATE: 20241209
